FAERS Safety Report 9478445 (Version 2)
Quarter: 2014Q1

REPORT INFORMATION
  Report Type: Spontaneous
  Country: US (occurrence: None)
  Receive Date: 20130822
  Receipt Date: 20140129
  Transmission Date: 20141002
  Serious: Yes (Other)
  Sender: FDA-Public Use
  Company Number: JPI-P-034553

PATIENT
  Age: 29 Year
  Sex: Female
  Weight: 95.4 kg

DRUGS (4)
  1. XYREM (SODIUM OXYBATE) ORAL SOLUTION, 500MG/ML [Suspect]
     Indication: NARCOLEPSY
     Dosage: 2 GM 2 IN 1 D
     Route: 048
     Dates: start: 20130524
  2. XYREM (SODIUM OXYBATE) ORAL SOLUTION, 500MG/ML [Suspect]
     Indication: SOMNOLENCE
     Dosage: 2 GM 2 IN 1 D
     Route: 048
     Dates: start: 20130524
  3. ARMODAFINIL (ARMODAFINIL) [Concomitant]
  4. VITAMIN D (ERGOCALCIFEROL) [Concomitant]

REACTIONS (4)
  - Urinary tract infection [None]
  - Complex regional pain syndrome [None]
  - Kidney infection [None]
  - Headache [None]
